FAERS Safety Report 10100625 (Version 2)
Quarter: 2014Q2

REPORT INFORMATION
  Report Type: Report from Study
  Country: US (occurrence: US)
  Receive Date: 20140423
  Receipt Date: 20140520
  Transmission Date: 20141212
  Serious: Yes (Hospitalization)
  Sender: FDA-Public Use
  Company Number: US-ACTELION-A-US2014-97588

PATIENT
  Age: 48 Year
  Sex: Male

DRUGS (3)
  1. TRACLEER [Suspect]
     Indication: PULMONARY HYPERTENSION
     Dosage: UNK
     Route: 048
  2. LASIX [Suspect]
     Indication: PULMONARY HYPERTENSION
  3. COUMADIN [Concomitant]

REACTIONS (2)
  - Dehydration [Recovered/Resolved]
  - Blood potassium decreased [Recovered/Resolved]
